FAERS Safety Report 7596191-4 (Version None)
Quarter: 2011Q3

REPORT INFORMATION
  Report Type: 
  Country: None (occurrence: None)
  Receive Date: 20110707
  Receipt Date: 20110627
  Transmission Date: 20111222
  Serious: Yes (Other)
  Sender: FDA-Public Use
  Company Number: US-PFIZER INC-2011144907

PATIENT
  Sex: Female

DRUGS (1)
  1. PRISTIQ [Suspect]
     Dosage: 300 MG DAILY DOSE

REACTIONS (3)
  - GASTRIC BYPASS [None]
  - MEDICATION RESIDUE [None]
  - INCORRECT DOSE ADMINISTERED [None]
